FAERS Safety Report 10023364 (Version 1)
Quarter: 2014Q1

REPORT INFORMATION
  Report Type: Spontaneous
  Country: GB (occurrence: GB)
  Receive Date: 20140320
  Receipt Date: 20140320
  Transmission Date: 20141002
  Serious: Yes (Hospitalization)
  Sender: FDA-Public Use
  Company Number: GB-RANBAXY-2014RR-79038

PATIENT
  Age: 48 Year
  Sex: Male

DRUGS (1)
  1. CO-AMOXICLAV [Suspect]
     Indication: APPENDICECTOMY
     Dosage: UNK
     Route: 051
     Dates: start: 20121007, end: 20121010

REACTIONS (18)
  - Insomnia [Recovered/Resolved with Sequelae]
  - Heart rate irregular [Unknown]
  - Tachyphrenia [Unknown]
  - Anxiety [Unknown]
  - Nightmare [Unknown]
  - Negative thoughts [Unknown]
  - Paranoia [Unknown]
  - Hallucination, visual [Unknown]
  - Paraesthesia [Unknown]
  - Pyrexia [Unknown]
  - Rash [Unknown]
  - Dizziness [Unknown]
  - Chromaturia [Unknown]
  - Tongue discolouration [Unknown]
  - Hyperacusis [Unknown]
  - Oedema mouth [Unknown]
  - Lip swelling [Unknown]
  - Swollen tongue [Unknown]
